FAERS Safety Report 9204368 (Version 2)
Quarter: 2013Q2

REPORT INFORMATION
  Report Type: Report from Study
  Country: IL (occurrence: IL)
  Receive Date: 20130402
  Receipt Date: 20130531
  Transmission Date: 20140414
  Serious: Yes (Death, Other)
  Sender: FDA-Public Use
  Company Number: IL-ROCHE-1204945

PATIENT
  Age: 65 Year
  Sex: Female
  Weight: 75 kg

DRUGS (10)
  1. VEMURAFENIB [Suspect]
     Indication: NON-SMALL CELL LUNG CANCER METASTATIC
     Route: 048
     Dates: start: 20121218, end: 20130215
  2. VEMURAFENIB [Suspect]
     Indication: OFF LABEL USE
  3. ERLOTINIB [Suspect]
     Indication: LUNG CANCER METASTATIC
     Route: 065
  4. PEMETREXED DISODIUM [Suspect]
     Indication: LUNG CANCER METASTATIC
     Route: 065
     Dates: start: 20120601
  5. CARBOPLATIN [Suspect]
     Indication: LUNG CANCER METASTATIC
     Route: 065
     Dates: start: 20120601
  6. VINORELBINE TARTRATE [Suspect]
     Indication: LUNG CANCER METASTATIC
     Route: 065
  7. GEMCITABINE HYDROCHLORIDE [Suspect]
     Indication: LUNG CANCER METASTATIC
     Route: 065
  8. DEXAMETHASONE [Concomitant]
     Route: 048
  9. NORMALOL [Concomitant]
     Route: 048
  10. FUSID (ISRAEL) [Concomitant]
     Route: 048

REACTIONS (2)
  - Disease progression [Fatal]
  - Supraventricular tachycardia [Recovered/Resolved]
